FAERS Safety Report 16067961 (Version 1)
Quarter: 2019Q1

REPORT INFORMATION
  Report Type: Report from Study
  Country: US (occurrence: US)
  Receive Date: 20190313
  Receipt Date: 20190313
  Transmission Date: 20190418
  Serious: Yes (Other)
  Sender: FDA-Public Use
  Company Number: US-GILEAD-2019-0392368

PATIENT
  Age: 40 Year
  Sex: Female

DRUGS (5)
  1. REMODULIN [Concomitant]
     Active Substance: TREPROSTINIL
  2. COUMADIN [Concomitant]
     Active Substance: WARFARIN SODIUM
  3. ADCIRCA [Concomitant]
     Active Substance: TADALAFIL
  4. AMBRISENTAN [Suspect]
     Active Substance: AMBRISENTAN
     Indication: PRODUCT USED FOR UNKNOWN INDICATION
     Dosage: 10 MG, QD
     Route: 065
     Dates: start: 20181112
  5. TRACLEER [Concomitant]
     Active Substance: BOSENTAN

REACTIONS (13)
  - Syncope [Unknown]
  - Injection site erythema [Unknown]
  - Malaise [Not Recovered/Not Resolved]
  - Diarrhoea [Not Recovered/Not Resolved]
  - Headache [Unknown]
  - Upper respiratory tract congestion [Unknown]
  - Pyrexia [Unknown]
  - Dizziness [Unknown]
  - Influenza [Unknown]
  - Injection site swelling [Unknown]
  - Injection site pain [Unknown]
  - Heart rate increased [Unknown]
  - Dyspnoea [Unknown]
